FAERS Safety Report 10478558 (Version 1)
Quarter: 2014Q3

REPORT INFORMATION
  Report Type: Spontaneous
  Country: US (occurrence: None)
  Receive Date: 20140925
  Receipt Date: 20140925
  Transmission Date: 20150326
  Serious: No
  Sender: FDA-Public Use
  Company Number: None

PATIENT
  Age: 48 Year
  Sex: Female
  Weight: 65.77 kg

DRUGS (1)
  1. TECFIDERA [Suspect]
     Active Substance: DIMETHYL FUMARATE
     Indication: MULTIPLE SCLEROSIS RELAPSE
     Dosage: 1 PILL NIGHTLY TAKEN BY MOUTH
     Route: 048
     Dates: start: 20140921, end: 20140922

REACTIONS (6)
  - Flushing [None]
  - Skin burning sensation [None]
  - Abdominal pain [None]
  - Abdominal distension [None]
  - Pain [None]
  - Influenza like illness [None]

NARRATIVE: CASE EVENT DATE: 20140923
